FAERS Safety Report 9197481 (Version 3)
Quarter: 2013Q3

REPORT INFORMATION
  Report Type: Spontaneous
  Country: FR (occurrence: FR)
  Receive Date: 20130328
  Receipt Date: 20130919
  Transmission Date: 20140515
  Serious: Yes (Other)
  Sender: FDA-Public Use
  Company Number: FR-GILEAD-2013-0072390

PATIENT
  Age: 60 Year
  Sex: Male

DRUGS (6)
  1. TRUVADA [Suspect]
     Indication: HIV INFECTION
     Dosage: 3 DF, QD
     Route: 048
     Dates: start: 20100923
  2. TRUVADA [Suspect]
     Dosage: 1 DF, QD
     Route: 048
     Dates: start: 20130206
  3. REYATAZ [Suspect]
     Indication: HIV INFECTION
     Dosage: 3 DF, QD
     Dates: start: 20100923
  4. REYATAZ [Suspect]
     Dosage: 1 DF, QD
     Dates: start: 20130206
  5. NORVIR [Suspect]
     Indication: HIV INFECTION
     Dosage: 3 DF, QD
     Dates: start: 20100923
  6. NORVIR [Suspect]
     Dosage: 1 DF, QD
     Dates: start: 20130206

REACTIONS (4)
  - Overdose [Recovered/Resolved]
  - Creatinine renal clearance decreased [Recovered/Resolved]
  - Proteinuria [Recovered/Resolved]
  - Medication error [Recovered/Resolved]
